FAERS Safety Report 19910535 (Version 1)
Quarter: 2021Q4

REPORT INFORMATION
  Report Type: Spontaneous
  Country: KR (occurrence: KR)
  Receive Date: 20211004
  Receipt Date: 20211004
  Transmission Date: 20220303
  Serious: Yes (Hospitalization, Other)
  Sender: FDA-Public Use
  Company Number: KP-EPICPHARMA-KP-2021EPCLIT01039

PATIENT
  Age: 38 Year
  Sex: Female

DRUGS (1)
  1. MEPERIDINE [Suspect]
     Active Substance: MEPERIDINE
     Indication: Procedural pain
     Route: 065

REACTIONS (1)
  - Post procedural complication [Unknown]
